FAERS Safety Report 19203187 (Version 2)
Quarter: 2021Q2

REPORT INFORMATION
  Report Type: Spontaneous
  Country: JP (occurrence: JP)
  Receive Date: 20210430
  Receipt Date: 20210521
  Transmission Date: 20210717
  Serious: Yes (Other)
  Sender: FDA-Public Use
  Company Number: JP-TAKEDA-2021TUS017734

PATIENT
  Age: 66 Year
  Sex: Female

DRUGS (8)
  1. BIOFERMIN [LACTOMIN] [Concomitant]
     Active Substance: DIETARY SUPPLEMENT\PROBIOTICS
     Dosage: 1 GRAM, Q8HR
     Route: 048
  2. LIALDA [Suspect]
     Active Substance: MESALAMINE
     Indication: COLITIS ULCERATIVE
     Dosage: 1200 MILLIGRAM, QD
     Route: 048
     Dates: start: 20201222, end: 20210105
  3. CEREKINON [Concomitant]
     Active Substance: TRIMEBUTINE
     Dosage: 100 MILLIGRAM, Q8HR
     Route: 048
  4. BIOFERMIN [LACTOMIN] [Concomitant]
     Active Substance: DIETARY SUPPLEMENT\PROBIOTICS
     Indication: ENTEROCOLITIS
     Dosage: 3 GRAM, Q8HR
     Route: 048
  5. CEREKINON [Concomitant]
     Active Substance: TRIMEBUTINE
     Indication: ENTEROCOLITIS
     Dosage: 300 MILLIGRAM, Q8HR
     Route: 048
  6. NORVASC [Concomitant]
     Active Substance: AMLODIPINE BESYLATE
     Indication: HYPERTENSION
     Dosage: 5 MILLIGRAM, QD
     Route: 065
  7. JANUVIA [Concomitant]
     Active Substance: SITAGLIPTIN PHOSPHATE
     Indication: DIABETES MELLITUS
     Dosage: 100 MILLIGRAM, QD
     Route: 048
  8. LIALDA [Suspect]
     Active Substance: MESALAMINE
     Dosage: 4800 MILLIGRAM, QD
     Route: 048
     Dates: start: 20201223, end: 20210112

REACTIONS (3)
  - Pyrexia [Recovered/Resolved]
  - Product size issue [Unknown]
  - Blood creatinine increased [Not Recovered/Not Resolved]

NARRATIVE: CASE EVENT DATE: 20201226
